FAERS Safety Report 14829042 (Version 1)
Quarter: 2018Q2

REPORT INFORMATION
  Report Type: Spontaneous
  Country: ES (occurrence: ES)
  Receive Date: 20180427
  Receipt Date: 20180427
  Transmission Date: 20180711
  Serious: Yes (Other)
  Sender: FDA-Public Use
  Company Number: ES-THROMBOGENICS NV-SPO-2018-2489

PATIENT
  Age: 53 Year
  Sex: Female

DRUGS (1)
  1. JETREA [Suspect]
     Active Substance: OCRIPLASMIN
     Indication: VITREOUS ADHESIONS
     Dosage: 0.125 MG, ONE TIME DOSE
     Route: 031

REACTIONS (6)
  - Retinal deposits [Not Recovered/Not Resolved]
  - Visual acuity reduced [Unknown]
  - Macular hole [Recovered/Resolved]
  - Disease progression [Recovered/Resolved]
  - Retinal degeneration [Not Recovered/Not Resolved]
  - Retinogram abnormal [Unknown]
